FAERS Safety Report 24736617 (Version 6)
Quarter: 2025Q3

REPORT INFORMATION
  Report Type: Spontaneous
  Country: JP (occurrence: JP)
  Receive Date: 20241216
  Receipt Date: 20250714
  Transmission Date: 20251021
  Serious: Yes (Death, Life-Threatening, Hospitalization)
  Sender: ROCHE
  Company Number: JP-CHUGAI-2024040130

PATIENT
  Age: 38 Year
  Sex: Female
  Weight: 72.4 kg

DRUGS (5)
  1. ROZLYTREK [Suspect]
     Active Substance: ENTRECTINIB
     Indication: Lung adenocarcinoma
     Dosage: 600 MILLIGRAM, QD
     Route: 048
     Dates: start: 20241113, end: 20241117
  2. ROZLYTREK [Suspect]
     Active Substance: ENTRECTINIB
     Dosage: 400 MILLIGRAM, QD, AFTER BREAKFAST
     Route: 048
     Dates: start: 20241118, end: 20241122
  3. LOPERAMIDE HYDROCHLORIDE [Concomitant]
     Active Substance: LOPERAMIDE HYDROCHLORIDE
     Dates: start: 20241114, end: 20241114
  4. ESOMEPRAZOLE MAGNESIUM [Concomitant]
     Active Substance: ESOMEPRAZOLE MAGNESIUM
     Route: 048
     Dates: start: 20241115
  5. MIYA-BM [Concomitant]
     Active Substance: CLOSTRIDIUM BUTYRICUM SPORES STRAIN M-55
     Route: 048
     Dates: start: 20241115

REACTIONS (8)
  - Ventricular fibrillation [Fatal]
  - Adrenal insufficiency [Unknown]
  - Cardiac failure [Fatal]
  - Left ventricular dysfunction [Fatal]
  - Pulmonary oedema [Unknown]
  - Neuropathy peripheral [Recovering/Resolving]
  - Myocarditis [Fatal]
  - Diarrhoea [Recovered/Resolved]

NARRATIVE: CASE EVENT DATE: 20241114
